FAERS Safety Report 5202780-4 (Version None)
Quarter: 2007Q1

REPORT INFORMATION
  Report Type: 
  Country: None (occurrence: None)
  Receive Date: 20070109
  Receipt Date: 20061229
  Transmission Date: 20070707
  Serious: Yes (Other)
  Sender: FDA-Public Use
  Company Number: US-PFIZER INC-2007001390

PATIENT
  Age: 56 Year
  Sex: Female
  Weight: 56.7 kg

DRUGS (5)
  1. ATARAX [Suspect]
     Indication: SINUSITIS
     Dosage: DAILY DOSE:25MG-FREQ:AT BEDTIME
     Dates: start: 20061211, end: 20061216
  2. MYOBLOC [Suspect]
     Indication: MIGRAINE
     Dates: start: 20061205
  3. MYOBLOC [Suspect]
     Indication: MUSCLE SPASMS
  4. CRESTOR [Concomitant]
  5. VISKEN [Concomitant]

REACTIONS (5)
  - DRY MOUTH [None]
  - DYSPHAGIA [None]
  - EYE SWELLING [None]
  - INJECTION SITE PAIN [None]
  - MUSCULOSKELETAL STIFFNESS [None]
